FAERS Safety Report 4993052-1 (Version None)
Quarter: 2006Q1

REPORT INFORMATION
  Report Type: 
  Country: None (occurrence: None)
  Receive Date: 20060313
  Receipt Date: 20051122
  Transmission Date: 20060701
  Serious: No
  Sender: FDA-Public Use
  Company Number: 2005-BP-16651BP

PATIENT
  Age: 61 Year
  Sex: Female

DRUGS (8)
  1. SPIRIVA [Suspect]
     Indication: CHRONIC OBSTRUCTIVE PULMONARY DISEASE
     Dosage: 18 MCG (18 MCG),IH
     Dates: start: 20050901
  2. SPIRIVA [Suspect]
  3. SPIRIVA [Suspect]
  4. PAXIL [Concomitant]
  5. PREMARIN [Concomitant]
  6. LIPITOR [Concomitant]
  7. MUCINEX (GUAIFENESIN) [Concomitant]
  8. VITAMINS [Concomitant]

REACTIONS (3)
  - AGEUSIA [None]
  - COUGH [None]
  - DRUG INEFFECTIVE [None]
